FAERS Safety Report 8785782 (Version 3)
Quarter: 2012Q4

REPORT INFORMATION
  Report Type: Report from Study
  Country: AU (occurrence: AU)
  Receive Date: 20120914
  Receipt Date: 20121126
  Transmission Date: 20130627
  Serious: Yes (Hospitalization)
  Sender: FDA-Public Use
  Company Number: AU-GLAXOSMITHKLINE-B0822939B

PATIENT
  Age: 87 Year
  Sex: Female

DRUGS (2)
  1. ELTROMBOPAG [Suspect]
     Indication: THROMBOCYTOPENIA
     Dosage: 200MG Cyclic
     Route: 048
     Dates: start: 20120716
  2. AZACITIDINE [Suspect]
     Indication: THROMBOCYTOPENIA
     Dosage: 125MG Cyclic
     Route: 058
     Dates: start: 20120716

REACTIONS (1)
  - Skin infection [Recovered/Resolved]
